FAERS Safety Report 7950060-6 (Version None)
Quarter: 2011Q4

REPORT INFORMATION
  Report Type: 
  Country: None (occurrence: None)
  Receive Date: 20111130
  Receipt Date: 20111121
  Transmission Date: 20120403
  Serious: Yes (Hospitalization)
  Sender: FDA-Public Use
  Company Number: CA-ROCHE-1015465

PATIENT
  Sex: Male
  Weight: 89.892 kg

DRUGS (13)
  1. PLAQUENIL [Concomitant]
  2. METHOTREXATE [Concomitant]
  3. SIMVASTATIN [Concomitant]
  4. PANTOPRAZOLE SODIUM [Concomitant]
  5. ACTONEL [Concomitant]
  6. CALCIUM [Concomitant]
  7. ACTEMRA [Suspect]
     Indication: RHEUMATOID ARTHRITIS
     Route: 042
     Dates: start: 20110630
  8. TRAVOPROST AND TIMOLOL [Concomitant]
  9. DOCUSATE [Concomitant]
  10. RAMIPRIL [Concomitant]
     Indication: BLOOD PRESSURE
  11. ASPIRIN [Concomitant]
  12. FOLIC ACID [Concomitant]
  13. SULFASALAZINE [Concomitant]

REACTIONS (1)
  - VASCULAR GRAFT [None]
